FAERS Safety Report 7578238-4 (Version None)
Quarter: 2011Q2

REPORT INFORMATION
  Report Type: 
  Country: None (occurrence: None)
  Receive Date: 20110628
  Receipt Date: 20110617
  Transmission Date: 20111010
  Serious: Yes (Hospitalization)
  Sender: FDA-Public Use
  Company Number: B0729082A

PATIENT
  Age: 83 Year
  Sex: Female

DRUGS (1)
  1. CHLORAMBUCIL [Suspect]
     Route: 048
     Dates: start: 20110604, end: 20110608

REACTIONS (2)
  - PLATELET COUNT DECREASED [None]
  - RASH PRURITIC [None]
